FAERS Safety Report 8447013-0 (Version None)
Quarter: 2012Q2

REPORT INFORMATION
  Report Type: 
  Country: None (occurrence: None)
  Receive Date: 20120612
  Receipt Date: 20120530
  Transmission Date: 20120825
  Serious: Yes (Hospitalization)
  Sender: FDA-Public Use
  Company Number: KR-JNJFOC-20120521333

PATIENT
  Age: 71 Year
  Sex: Female
  Weight: 56 kg

DRUGS (5)
  1. CITOPCIN (CIPROFLOXACIN HDYROCHLORIDE) [Concomitant]
  2. FURAZOLIDON (FURAZOLIDONE) [Concomitant]
  3. VIVIR (ACICLOVIR) [Concomitant]
  4. DACOGEN [Suspect]
     Indication: MYELODYSPLASTIC SYNDROME
     Dosage: 20 MG/M2, IN 1 DAY, INTRAVENOUS
     Route: 042
     Dates: start: 20110411, end: 20110412
  5. DACOGEN [Suspect]
     Indication: MYELODYSPLASTIC SYNDROME
     Dosage: 20 MG/M2, IN 1 DAY, INTRAVENOUS
     Route: 042
     Dates: start: 20110523, end: 20110527

REACTIONS (5)
  - UPPER RESPIRATORY TRACT INFECTION [None]
  - OROPHARYNGEAL PAIN [None]
  - PYREXIA [None]
  - PHARYNGEAL ABSCESS [None]
  - FEBRILE NEUTROPENIA [None]
